FAERS Safety Report 10615147 (Version 1)
Quarter: 2014Q4

REPORT INFORMATION
  Report Type: Spontaneous
  Country: US (occurrence: None)
  Receive Date: 20141125
  Receipt Date: 20141125
  Transmission Date: 20150529
  Serious: No
  Sender: FDA-Public Use
  Company Number: None

PATIENT
  Age: 75 Year
  Sex: Male

DRUGS (3)
  1. ALLOPURINOL. [Suspect]
     Active Substance: ALLOPURINOL
     Indication: GOUT
     Dates: start: 20131022, end: 20131122
  2. ATENOLOL. [Concomitant]
     Active Substance: ATENOLOL
  3. AMOXICILLIN/CLAVULANATE [Suspect]
     Active Substance: AMOXICILLIN\CLAVULANATE POTASSIUM
     Indication: CELLULITIS
     Dates: start: 20131011, end: 20131015

REACTIONS (8)
  - Aspartate aminotransferase increased [None]
  - Blood bilirubin increased [None]
  - Arthritis [None]
  - Jaundice [None]
  - Decreased appetite [None]
  - Drug-induced liver injury [None]
  - Blood alkaline phosphatase increased [None]
  - Alanine aminotransferase increased [None]

NARRATIVE: CASE EVENT DATE: 20131121
